FAERS Safety Report 5864006-8 (Version None)
Quarter: 2008Q3

REPORT INFORMATION
  Report Type: 
  Country: None (occurrence: None)
  Receive Date: 20080829
  Receipt Date: 20080825
  Transmission Date: 20090109
  Serious: Yes (Other)
  Sender: FDA-Public Use
  Company Number: US-BAYER-200826897NA

PATIENT
  Age: 44 Year
  Sex: Female
  Weight: 64 kg

DRUGS (2)
  1. MIRENA [Suspect]
     Indication: CONTRACEPTION
     Route: 015
     Dates: start: 20071001, end: 20080601
  2. XANAX [Concomitant]
     Indication: DRUG USE FOR UNKNOWN INDICATION

REACTIONS (7)
  - ALOPECIA [None]
  - ANAEMIA [None]
  - DEPRESSION [None]
  - SUICIDAL IDEATION [None]
  - UTERINE LEIOMYOMA [None]
  - UTERINE POLYP [None]
  - VAGINAL HAEMORRHAGE [None]
